FAERS Safety Report 8548810-3 (Version None)
Quarter: 2012Q3

REPORT INFORMATION
  Report Type: 
  Country: None (occurrence: None)
  Receive Date: 20120730
  Receipt Date: 20120725
  Transmission Date: 20120928
  Serious: Yes (Death, Hospitalization)
  Sender: FDA-Public Use
  Company Number: US-US-EMD SERONO, INC.-7031655

PATIENT
  Sex: Female

DRUGS (10)
  1. LYRICA [Concomitant]
     Indication: PRODUCT USED FOR UNKNOWN INDICATION
     Dates: start: 20090401
  2. LISINOPRIL AND HYDROCHLOROTHIAZIDE [Concomitant]
     Indication: HYPERTENSION
     Dosage: 20 TO 12.5 MG TABLET
     Route: 048
  3. FERREX [Concomitant]
     Indication: PRODUCT USED FOR UNKNOWN INDICATION
     Route: 048
  4. PROVIGIL [Concomitant]
     Indication: ASTHENIA
     Dates: start: 20090401
  5. REBIF [Suspect]
     Indication: MULTIPLE SCLEROSIS
     Route: 058
     Dates: start: 20090127, end: 20100812
  6. CALCIUM [Concomitant]
     Indication: PRODUCT USED FOR UNKNOWN INDICATION
     Route: 048
  7. MULTI-VITAMIN [Concomitant]
     Indication: PRODUCT USED FOR UNKNOWN INDICATION
     Route: 048
  8. LEXAPRO [Concomitant]
     Indication: DEPRESSION
     Dates: start: 20090401
  9. LEXAPRO [Concomitant]
     Dates: start: 20100801
  10. PREDNISONE [Concomitant]
     Indication: PRODUCT USED FOR UNKNOWN INDICATION
     Dosage: 12 DAY DOSE PACK

REACTIONS (20)
  - HEPATIC FAILURE [None]
  - INSOMNIA [None]
  - GENERALISED OEDEMA [None]
  - BALANCE DISORDER [None]
  - HYPOKALAEMIA [None]
  - ASTHENIA [None]
  - PYELONEPHRITIS ACUTE [None]
  - HYPOALBUMINAEMIA [None]
  - FOLATE DEFICIENCY [None]
  - ANAEMIA [None]
  - HEPATIC CIRRHOSIS [None]
  - VITAMIN D DEFICIENCY [None]
  - HEPATIC STEATOSIS [None]
  - FALL [None]
  - VISUAL IMPAIRMENT [None]
  - HEPATIC ENCEPHALOPATHY [None]
  - HYPONATRAEMIA [None]
  - THROMBOCYTOPENIA [None]
  - FATIGUE [None]
  - DIARRHOEA [None]
